FAERS Safety Report 5045272-8 (Version None)
Quarter: 2006Q3

REPORT INFORMATION
  Report Type: 
  Country: None (occurrence: None)
  Receive Date: 20060705
  Receipt Date: 20060615
  Transmission Date: 20061208
  Serious: Yes (Hospitalization)
  Sender: FDA-Public Use
  Company Number: US200606003713

PATIENT
  Sex: Female

DRUGS (3)
  1. HUMALOG [Suspect]
     Indication: DIABETES MELLITUS NON-INSULIN-DEPENDENT
     Dosage: 24
     Dates: start: 19960101
  2. HUMULIN N [Suspect]
     Indication: DIABETES MELLITUS NON-INSULIN-DEPENDENT
     Dosage: 16
     Dates: start: 19960101
  3. PREDNISONE TAB [Concomitant]

REACTIONS (6)
  - BLOOD DISORDER [None]
  - BLOOD GLUCOSE INCREASED [None]
  - INFECTION [None]
  - MALAISE [None]
  - NEUROPATHY PERIPHERAL [None]
  - SKIN LACERATION [None]
